FAERS Safety Report 4588415-2 (Version None)
Quarter: 2005Q1

REPORT INFORMATION
  Report Type: 
  Country: None (occurrence: None)
  Receive Date: 20050215
  Receipt Date: 20050215
  Transmission Date: 20050727
  Serious: Yes (Other)
  Sender: FDA-Public Use
  Company Number: None

PATIENT
  Age: 76 Year
  Sex: Male

DRUGS (1)
  1. ARICEPT [Suspect]
     Indication: DEMENTIA ALZHEIMER'S TYPE
     Dosage: 5 MG   DAILY   ORAL
     Route: 048
     Dates: start: 20050108, end: 20050203

REACTIONS (3)
  - DIARRHOEA [None]
  - NAUSEA [None]
  - PAIN [None]
